FAERS Safety Report 18458964 (Version 3)
Quarter: 2021Q2

REPORT INFORMATION
  Report Type: Report from Study
  Country: DE (occurrence: DE)
  Receive Date: 20201103
  Receipt Date: 20210617
  Transmission Date: 20210717
  Serious: Yes (Hospitalization)
  Sender: FDA-Public Use
  Company Number: DE-TAKEDA-DE201848396

PATIENT
  Age: 44 Year
  Weight: 95 kg

DRUGS (10)
  1. CYKLOKAPRON [Concomitant]
     Active Substance: TRANEXAMIC ACID
     Indication: HAEMORRHAGE PROPHYLAXIS
     Dosage: 500 MILLIGRAM, TID
     Route: 048
     Dates: start: 20181112, end: 20181118
  2. ADVATE [Suspect]
     Active Substance: ANTIHEMOPHILIC FACTOR, HUMAN RECOMBINANT
     Indication: PROPHYLAXIS
     Dosage: 4000 INTERNATIONAL UNIT, EVERY 3?4 DAYS
     Route: 065
     Dates: start: 20061101
  3. ARCOXIA [Concomitant]
     Active Substance: ETORICOXIB
     Indication: ANALGESIC THERAPY
     Dosage: 60 OR 90 MILLIGRAM
     Route: 048
     Dates: start: 20111007
  4. ADVATE [Suspect]
     Active Substance: ANTIHEMOPHILIC FACTOR, HUMAN RECOMBINANT
     Indication: FACTOR VIII DEFICIENCY
     Dosage: 2000 INTERNATIONAL UNIT, EVERY 2 DAYS
     Route: 042
     Dates: start: 20061101
  5. ADVATE [Suspect]
     Active Substance: ANTIHEMOPHILIC FACTOR, HUMAN RECOMBINANT
     Indication: FACTOR VIII DEFICIENCY
     Dosage: 2000 INTERNATIONAL UNIT, EVERY 2 DAYS
     Route: 042
     Dates: start: 20061101
  6. ADYNOVI [Concomitant]
     Active Substance: ANTIHEMOPHILIC FACTOR, HUMAN RECOMBINANT
     Indication: PROPHYLAXIS
     Dosage: 2000 INTERNATIONAL UNIT, EVERY 2 DAYS
     Route: 065
     Dates: start: 20061101
  7. ADYNOVI [Concomitant]
     Active Substance: ANTIHEMOPHILIC FACTOR, HUMAN RECOMBINANT
     Dosage: 2000 INTERNATIONAL UNIT, EVERY 3?4 DAYS
     Route: 065
     Dates: start: 20181024
  8. ADVATE [Suspect]
     Active Substance: ANTIHEMOPHILIC FACTOR, HUMAN RECOMBINANT
     Indication: FACTOR VIII DEFICIENCY
     Dosage: 2000 INTERNATIONAL UNIT, EVERY 2 DAYS
     Route: 042
     Dates: start: 20061101
  9. ADVATE [Suspect]
     Active Substance: ANTIHEMOPHILIC FACTOR, HUMAN RECOMBINANT
     Indication: PROPHYLAXIS
     Dosage: 4000 INTERNATIONAL UNIT, EVERY 3?4 DAYS
     Route: 065
     Dates: start: 20061101
  10. ADVATE [Suspect]
     Active Substance: ANTIHEMOPHILIC FACTOR, HUMAN RECOMBINANT
     Indication: PROPHYLAXIS
     Dosage: 4000 INTERNATIONAL UNIT, EVERY 3?4 DAYS
     Route: 065
     Dates: start: 20061101

REACTIONS (1)
  - Arthropathy [Recovered/Resolved with Sequelae]

NARRATIVE: CASE EVENT DATE: 201703
